FAERS Safety Report 8356492-9 (Version None)
Quarter: 2012Q2

REPORT INFORMATION
  Report Type: 
  Country: None (occurrence: None)
  Receive Date: 20120511
  Receipt Date: 20120511
  Transmission Date: 20120825
  Serious: Yes (Hospitalization)
  Sender: FDA-Public Use
  Company Number: None

PATIENT
  Sex: Male
  Weight: 97.2 kg

DRUGS (1)
  1. INTRON A [Suspect]
     Dosage: 66 MILLION IU
     Dates: start: 20120409, end: 20120411

REACTIONS (2)
  - ERECTILE DYSFUNCTION [None]
  - BLOOD TESTOSTERONE DECREASED [None]
